FAERS Safety Report 16588020 (Version 1)
Quarter: 2019Q3

REPORT INFORMATION
  Report Type: Spontaneous
  Country: US (occurrence: US)
  Receive Date: 20190717
  Receipt Date: 20190717
  Transmission Date: 20191004
  Serious: No
  Sender: FDA-Public Use
  Company Number: US-MYLANLABS-2019M1061343

PATIENT
  Age: 72 Year
  Sex: Female
  Weight: 68 kg

DRUGS (1)
  1. ESTRADIOL TRANSDERMAL SYSTEM [Suspect]
     Active Substance: ESTRADIOL
     Indication: HORMONE REPLACEMENT THERAPY
     Dosage: 1 DOSAGE FORM, QW
     Route: 062
     Dates: start: 20190528, end: 20190624

REACTIONS (5)
  - Erythema [Recovering/Resolving]
  - Burning sensation [Recovering/Resolving]
  - Rash [Recovering/Resolving]
  - Pruritus [Recovering/Resolving]
  - Off label use [Unknown]

NARRATIVE: CASE EVENT DATE: 2019
